FAERS Safety Report 9143693 (Version 1)
Quarter: 2013Q1

REPORT INFORMATION
  Report Type: Report from Study
  Country: IT (occurrence: IT)
  Receive Date: 20130306
  Receipt Date: 20130306
  Transmission Date: 20140127
  Serious: Yes (Other)
  Sender: FDA-Public Use
  Company Number: IT-ROCHE-1196041

PATIENT
  Sex: 0

DRUGS (5)
  1. TOCILIZUMAB [Suspect]
     Indication: RHEUMATOID ARTHRITIS
     Route: 065
  2. CHOLECALCIFEROL [Concomitant]
     Route: 065
     Dates: start: 20111221
  3. ALENDRONATE [Concomitant]
     Route: 065
     Dates: start: 20111221
  4. ACETYLSALICYLIC ACID [Concomitant]
     Route: 065
     Dates: start: 20030101
  5. LANSOPRAZOLE [Concomitant]
     Indication: PROPHYLAXIS
     Route: 065
     Dates: start: 20111221

REACTIONS (1)
  - Knee arthroplasty [Recovered/Resolved]
